FAERS Safety Report 22606487 (Version 6)
Quarter: 2023Q4

REPORT INFORMATION
  Report Type: Report from Study
  Country: ES (occurrence: ES)
  Receive Date: 20230615
  Receipt Date: 20231113
  Transmission Date: 20240110
  Serious: Yes (Death, Hospitalization, Other)
  Sender: FDA-Public Use
  Company Number: ES-JNJFOC-20230624820

PATIENT
  Age: 82 Year
  Sex: Female

DRUGS (2)
  1. IMBRUVICA [Suspect]
     Active Substance: IBRUTINIB
     Indication: Waldenstrom^s macroglobulinaemia
     Dosage: DOSE DECREASED
     Route: 048
     Dates: start: 20220302, end: 20220621
  2. IMBRUVICA [Suspect]
     Active Substance: IBRUTINIB
     Indication: Waldenstrom^s macroglobulinaemia
     Route: 048
     Dates: start: 20220302, end: 20220621

REACTIONS (9)
  - Respiratory failure [Fatal]
  - Haemorrhagic stroke [Fatal]
  - Hypertension [Fatal]
  - Haemorrhage [Fatal]
  - Atrial fibrillation [Fatal]
  - Cardiac failure [Fatal]
  - Respiratory tract infection [Fatal]
  - Aspiration [Fatal]
  - Epistaxis [Fatal]

NARRATIVE: CASE EVENT DATE: 20220511
